FAERS Safety Report 20681779 (Version 1)
Quarter: 2022Q2

REPORT INFORMATION
  Report Type: Spontaneous
  Country: FR (occurrence: FR)
  Receive Date: 20220407
  Receipt Date: 20220407
  Transmission Date: 20220721
  Serious: Yes (Hospitalization, Other)
  Sender: FDA-Public Use
  Company Number: FR-Fresenius Kabi-FK202203386

PATIENT
  Age: 69 Year
  Sex: Female
  Weight: 67 kg

DRUGS (20)
  1. DOCETAXEL [Suspect]
     Active Substance: DOCETAXEL
     Indication: Gastric cancer
     Dosage: 40 MILLIGRAM/SQ. METER (EVERY 1 CYCLE(S) DAY 1 AND DAY 15 OF CYCLE OF 4 WEEKS IN POSTOPERATIVE PERIO
     Route: 042
     Dates: end: 20220118
  2. DOCETAXEL [Suspect]
     Active Substance: DOCETAXEL
     Dosage: 50 MILLIGRAM/SQ. METER (EVERY 1 CYCLE(S) DAY 1 AND DAY 15 OF CYCLE OF 4 WEEKS IN PREOPERATIVE PERIOD
     Route: 042
     Dates: start: 20210728, end: 20210914
  3. DOCETAXEL [Suspect]
     Active Substance: DOCETAXEL
     Dosage: 50 MILLIGRAM/SQ. METER (EVERY 1 CYCLE(S) DAY 1 AND DAY 15 OF CYCLE OF 4 WEEKS IN POSTOPERATIVE PERIO
     Route: 042
     Dates: start: 20211201
  4. OXALIPLATIN [Suspect]
     Active Substance: OXALIPLATIN
     Indication: Gastric cancer
     Dosage: 50 MILLIGRAM/SQ. METER (EVERY 1 CYCLE(S) DAY 1 AND DAY 15 OF CYCLE OF 4 WEEKS IN POSTOPERATIVE PERIO
     Route: 042
     Dates: end: 20220118
  5. OXALIPLATIN [Suspect]
     Active Substance: OXALIPLATIN
     Dosage: 85 MILLIGRAM/SQ. METER (EVERY 1 CYCLE(S) DAY 1 AND DAY 15 OF CYCLE OF 4 WEEKS IN PREOPERATIVE PERIOD
     Route: 042
     Dates: start: 20210728, end: 20210914
  6. OXALIPLATIN [Suspect]
     Active Substance: OXALIPLATIN
     Dosage: 85 MILLIGRAM/SQ. METER (EVERY 1 CYCLE(S) DAY 1 AND DAY 15 OF CYCLE OF 4 WEEKS IN POSTOPERATIVE PERIO
     Route: 042
     Dates: start: 20211201
  7. FLUOROURACIL [Suspect]
     Active Substance: FLUOROURACIL
     Indication: Gastric cancer
     Dosage: 2600 MILLIGRAM/SQ. METER (EVERY 1 CYCLE(S) DAY 1 AND DAY 15 OF CYCLE OF 4 WEEKS IN PREOPERATIVE PERI
     Route: 042
     Dates: start: 20210728, end: 20210810
  8. FLUOROURACIL [Suspect]
     Active Substance: FLUOROURACIL
     Dosage: 2000 MILLIGRAM/SQ. METER (EVERY 1 CYCLE(S) DAY 1 AND DAY 15 OF CYCLE OF 4 WEEKS IN PREOPERATIVE PERI
     Route: 042
     Dates: start: 20210901, end: 20210914
  9. FLUOROURACIL [Suspect]
     Active Substance: FLUOROURACIL
     Dosage: 2000 MILLIGRAM/SQ. METER (EVERY 1 CYCLE(S) DAY 1 AND DAY 15 OF CYCLE OF 4 WEEKS IN PREOPERATIVE PERI
     Route: 042
     Dates: start: 20211201, end: 20220118
  10. LEUCOVORIN [Suspect]
     Active Substance: LEUCOVORIN
     Indication: Gastric cancer
     Dosage: 200 MILLIGRAM/SQ. METER (EVERY 1 CYCLE(S) DAY 1 AND DAY 15 OF CYCLE OF 4 WEEKS IN PREOPERATIVE PERIO
     Route: 042
     Dates: start: 20210728, end: 20210914
  11. LEUCOVORIN [Suspect]
     Active Substance: LEUCOVORIN
     Dosage: 200 MILLIGRAM/SQ. METER (EVERY 1 CYCLE(S) DAY 1 AND DAY 15 OF CYCLE OF 4 WEEKS IN POSTOPERATIVE PERI
     Route: 042
     Dates: start: 20211201, end: 20220118
  12. SPARTALIZUMAB [Suspect]
     Active Substance: SPARTALIZUMAB
     Indication: Gastric cancer
     Dosage: 400 MILLIGRAM (QD, DAY 1 OF CYCLE OF 4 WEEKS IN PREOPERATIVE/POSTOPERATIVE PERIOD)
     Route: 041
     Dates: start: 20210728, end: 20210901
  13. SPARTALIZUMAB [Suspect]
     Active Substance: SPARTALIZUMAB
     Dosage: 400 MILLIGRAM (QD, DAY 1 OF CYCLE OF 4 WEEKS IN PREOPERATIVE/POSTOPERATIVE PERIOD)
     Route: 041
     Dates: start: 20211201, end: 20220104
  14. ASPIRIN DL-LYSINE [Concomitant]
     Active Substance: ASPIRIN DL-LYSINE
     Indication: Product used for unknown indication
     Dosage: UNK
     Route: 065
     Dates: start: 201307
  15. METFORMIN [Concomitant]
     Active Substance: METFORMIN HYDROCHLORIDE
     Indication: Product used for unknown indication
     Dosage: UNK
     Route: 065
  16. METOPROLOL [Concomitant]
     Active Substance: METOPROLOL
     Indication: Product used for unknown indication
     Dosage: UNK
     Route: 065
  17. PANTOPRAZOLE [Concomitant]
     Active Substance: PANTOPRAZOLE
     Indication: Product used for unknown indication
     Dosage: UNK
     Route: 065
  18. INDAPAMIDE\PERINDOPRIL [Concomitant]
     Active Substance: INDAPAMIDE\PERINDOPRIL
     Indication: Product used for unknown indication
     Dosage: PERINDOPRIL/INDAPAMIDE
     Route: 065
  19. PRAVASTATIN [Concomitant]
     Active Substance: PRAVASTATIN
     Indication: Product used for unknown indication
     Dosage: UNK
     Route: 065
  20. RILMENIDINE [Concomitant]
     Active Substance: RILMENIDINE
     Indication: Product used for unknown indication
     Dosage: UNK
     Route: 065

REACTIONS (5)
  - Malnutrition [Recovered/Resolved]
  - General physical health deterioration [Recovered/Resolved]
  - Vomiting [Recovered/Resolved]
  - Device leakage [Recovered/Resolved]
  - Bone marrow failure [Recovered/Resolved]

NARRATIVE: CASE EVENT DATE: 20220104
